FAERS Safety Report 11724508 (Version 1)
Quarter: 2015Q4

REPORT INFORMATION
  Report Type: Spontaneous
  Country: US (occurrence: US)
  Receive Date: 20151110
  Receipt Date: 20151110
  Transmission Date: 20160304
  Serious: No
  Sender: FDA-Public Use
  Company Number: US-ELI_LILLY_AND_COMPANY-US200704005015

PATIENT
  Age: 78 Year
  Sex: Female

DRUGS (2)
  1. FORTEO [Suspect]
     Active Substance: TERIPARATIDE
     Indication: OSTEOPOROSIS
     Dosage: 20 UG, QD
     Dates: start: 20060911, end: 20070423
  2. FORTEO [Suspect]
     Active Substance: TERIPARATIDE
     Dosage: 20 UG, QD
     Dates: end: 2008

REACTIONS (9)
  - Mass [Recovered/Resolved]
  - Asthenia [Recovered/Resolved]
  - Tongue disorder [Recovered/Resolved]
  - Dysphagia [Recovered/Resolved]
  - Erythema nodosum [Recovering/Resolving]
  - Nausea [Recovered/Resolved]
  - Chest pain [Unknown]
  - Rash [Recovered/Resolved]
  - Angina pectoris [Unknown]

NARRATIVE: CASE EVENT DATE: 20060911
